FAERS Safety Report 4735469-6 (Version None)
Quarter: 2005Q3

REPORT INFORMATION
  Report Type: 
  Country: None (occurrence: None)
  Receive Date: 20050805
  Receipt Date: 20050728
  Transmission Date: 20060218
  Serious: No
  Sender: FDA-Public Use
  Company Number: 2005UW11202

PATIENT

DRUGS (2)
  1. SEROQUEL [Suspect]
     Route: 048
  2. DEPAKOTE [Concomitant]

REACTIONS (1)
  - PLATELET COUNT INCREASED [None]
